FAERS Safety Report 13949980 (Version 2)
Quarter: 2017Q3

REPORT INFORMATION
  Report Type: Spontaneous
  Country: FR (occurrence: FR)
  Receive Date: 20170908
  Receipt Date: 20170918
  Transmission Date: 20171128
  Serious: Yes (Other)
  Sender: FDA-Public Use
  Company Number: FR-ALSI-201700248

PATIENT
  Sex: Female

DRUGS (1)
  1. OXYGENE MEDICINAL LIQUIDE ALSF, [Suspect]
     Active Substance: OXYGEN
     Indication: PRODUCT USED FOR UNKNOWN INDICATION
     Route: 055

REACTIONS (2)
  - Accidental exposure to product [Recovered/Resolved]
  - Frostbite [Recovered/Resolved]

NARRATIVE: CASE EVENT DATE: 20170808
